FAERS Safety Report 9068309 (Version 2)
Quarter: 2013Q1

REPORT INFORMATION
  Report Type: Spontaneous
  Country: US (occurrence: US)
  Receive Date: 20130206
  Receipt Date: 20130305
  Transmission Date: 20140127
  Serious: Yes (Hospitalization, Other)
  Sender: FDA-Public Use
  Company Number: US-AMGEN-USASP2013005626

PATIENT
  Age: 77 Year
  Sex: Male

DRUGS (5)
  1. XGEVA [Suspect]
     Indication: PROSTATE CANCER METASTATIC
  2. XGEVA [Suspect]
     Indication: METASTASES TO BONE
  3. CELEBREX [Concomitant]
  4. FIRMAGON                           /01764801/ [Concomitant]
  5. BENADRYL                           /00000402/ [Concomitant]

REACTIONS (8)
  - Acute myeloid leukaemia [Unknown]
  - White blood cell count decreased [Unknown]
  - Neutropenia [Unknown]
  - Platelet count decreased [Unknown]
  - Lymphocyte count increased [Unknown]
  - Dizziness [Unknown]
  - Loose tooth [Unknown]
  - Dyspnoea [Unknown]
